FAERS Safety Report 21090140 (Version 1)
Quarter: 2022Q3

REPORT INFORMATION
  Report Type: Spontaneous
  Country: US (occurrence: US)
  Receive Date: 20220715
  Receipt Date: 20220715
  Transmission Date: 20221027
  Serious: No
  Sender: FDA-Public Use
  Company Number: US-PFIZER INC-202200957784

PATIENT
  Sex: Female

DRUGS (1)
  1. PAXLOVID [Suspect]
     Active Substance: NIRMATRELVIR\RITONAVIR
     Indication: COVID-19 treatment
     Dosage: UNK

REACTIONS (13)
  - Drug hypersensitivity [Unknown]
  - Reaction to excipient [Unknown]
  - Tongue discolouration [Unknown]
  - Glossodynia [Unknown]
  - Tongue disorder [Unknown]
  - Swollen tongue [Unknown]
  - Tongue coated [Unknown]
  - Dyspnoea [Unknown]
  - Speech disorder [Unknown]
  - Feeling abnormal [Unknown]
  - Fatigue [Unknown]
  - Insomnia [Unknown]
  - Loss of personal independence in daily activities [Unknown]
